FAERS Safety Report 4426335-4 (Version None)
Quarter: 2004Q3

REPORT INFORMATION
  Report Type: 
  Country: None (occurrence: None)
  Receive Date: 20040811
  Receipt Date: 20040730
  Transmission Date: 20050211
  Serious: Yes (Other)
  Sender: FDA-Public Use
  Company Number: 2004226313FR

PATIENT
  Sex: Female

DRUGS (3)
  1. SOLU-MEDROL [Suspect]
     Indication: METASTASES TO CENTRAL NERVOUS SYSTEM
     Dosage: SEE IMAGE
     Route: 042
     Dates: end: 20040701
  2. SOLU-MEDROL [Suspect]
     Indication: METASTASES TO CENTRAL NERVOUS SYSTEM
     Dosage: SEE IMAGE
     Route: 042
     Dates: start: 20040101
  3. FLUCONAZOLE [Suspect]
     Indication: MYCOSIS FUNGOIDES
     Dates: end: 20040701

REACTIONS (3)
  - PARANEOPLASTIC SYNDROME [None]
  - PURPURA [None]
  - THROMBOCYTOPENIA [None]
